FAERS Safety Report 4767845-X (Version None)
Quarter: 2005Q3

REPORT INFORMATION
  Report Type: 
  Country: None (occurrence: None)
  Receive Date: 20050913
  Receipt Date: 20050829
  Transmission Date: 20060218
  Serious: Yes (Other)
  Sender: FDA-Public Use
  Company Number: 2005120751

PATIENT
  Age: 46 Year
  Sex: Male
  Weight: 68.0396 kg

DRUGS (4)
  1. BONAMINE [Suspect]
     Indication: DIZZINESS
     Dosage: ONE TABLET ONE TIME, ORAL
     Route: 048
     Dates: start: 20050828, end: 20050828
  2. ALBUTEROL SULFATE HFA [Concomitant]
  3. SERETIDE MITE (FLUTICASONE PROPIONATE, SALMETEROL XINAFOATE) [Concomitant]
  4. FLUTICASONE PROPIONATE [Concomitant]

REACTIONS (2)
  - ABDOMINAL PAIN [None]
  - CHEST DISCOMFORT [None]
